FAERS Safety Report 23561283 (Version 1)
Quarter: 2024Q1

REPORT INFORMATION
  Report Type: Spontaneous
  Country: FR (occurrence: FR)
  Receive Date: 20240224
  Receipt Date: 20240224
  Transmission Date: 20240410
  Serious: Yes (Other)
  Sender: FDA-Public Use
  Company Number: None

PATIENT
  Age: 44 Year
  Sex: Male
  Weight: 82.6 kg

DRUGS (7)
  1. ATORVASTATIN [Suspect]
     Active Substance: ATORVASTATIN
     Indication: Atheroembolism
     Dates: start: 20210406, end: 20210428
  2. CLOPIDOGREL [Suspect]
     Active Substance: CLOPIDOGREL BISULFATE
     Indication: Atheroembolism
     Dates: start: 202008, end: 20220428
  3. ASPIRIN [Suspect]
     Active Substance: ASPIRIN
     Indication: Atheroembolism
     Dosage: 100 MG
     Dates: start: 20220428
  4. ATORVASTATIN\EZETIMIBE [Suspect]
     Active Substance: ATORVASTATIN\EZETIMIBE
     Indication: Atheroembolism
     Dosage: 10 MG/80 MG
     Dates: start: 20210428
  5. COLCHICINE [Suspect]
     Active Substance: COLCHICINE
     Indication: Atheroembolism
     Dates: start: 20210406, end: 20220428
  6. XARELTO [Suspect]
     Active Substance: RIVAROXABAN
     Indication: Atheroembolism
     Dosage: 20 MG
     Dates: start: 202008, end: 20200925
  7. ATORVASTATIN [Suspect]
     Active Substance: ATORVASTATIN
     Indication: Atheroembolism
     Dates: start: 202008, end: 20210406

REACTIONS (1)
  - Erectile dysfunction [Not Recovered/Not Resolved]

NARRATIVE: CASE EVENT DATE: 20201201
